FAERS Safety Report 4614839-0 (Version None)
Quarter: 2005Q1

REPORT INFORMATION
  Report Type: 
  Country: None (occurrence: None)
  Receive Date: 20050318
  Receipt Date: 20050318
  Transmission Date: 20050727
  Serious: Yes (Hospitalization)
  Sender: FDA-Public Use
  Company Number: None

PATIENT
  Age: 71 Year
  Sex: Male

DRUGS (3)
  1. TRAMADOL [Suspect]
     Indication: ARTHRALGIA
     Dosage: 100MG PO  TID
     Route: 048
     Dates: start: 20041104, end: 20050103
  2. AMITRIPTYLINE [Concomitant]
  3. LAMISIL [Concomitant]

REACTIONS (2)
  - ANTICONVULSANT DRUG LEVEL BELOW THERAPEUTIC [None]
  - GRAND MAL CONVULSION [None]
